FAERS Safety Report 9991867 (Version 1)
Quarter: 2014Q1

REPORT INFORMATION
  Report Type: Spontaneous
  Country: ES (occurrence: ES)
  Receive Date: 20140310
  Receipt Date: 20140310
  Transmission Date: 20141002
  Serious: Yes (Hospitalization)
  Sender: FDA-Public Use
  Company Number: ES-009507513-1403ESP001216

PATIENT
  Sex: Female

DRUGS (1)
  1. FOSAVANCE [Suspect]
     Dosage: STRENGTH: 70 MG/ 5600 IU
     Route: 048

REACTIONS (2)
  - Adverse event [Unknown]
  - Hypersensitivity [Unknown]
